FAERS Safety Report 10608445 (Version 1)
Quarter: 2014Q4

REPORT INFORMATION
  Report Type: Spontaneous
  Country: DE (occurrence: DE)
  Receive Date: 20141125
  Receipt Date: 20141125
  Transmission Date: 20150529
  Serious: Yes (Other)
  Sender: FDA-Public Use
  Company Number: DE-TEVA-523687GER

PATIENT
  Sex: Male

DRUGS (2)
  1. AMLODIPIN-RATIOPHARM 5 MG N TABLETTEN [Suspect]
     Active Substance: AMLODIPINE BESYLATE
     Indication: HYPERTENSION
     Dosage: 10 MILLIGRAM DAILY;
     Route: 048
     Dates: start: 201111, end: 201311
  2. AMLODIPIN-RATIOPHARM 5 MG N TABLETTEN [Suspect]
     Active Substance: AMLODIPINE BESYLATE
     Indication: ANGINA PECTORIS
     Dosage: 5 MILLIGRAM DAILY;
     Dates: start: 201311, end: 201405

REACTIONS (4)
  - Parkinson^s disease [Recovered/Resolved]
  - Tremor [Recovered/Resolved]
  - Gynaecomastia [Not Recovered/Not Resolved]
  - Mood swings [Recovered/Resolved]

NARRATIVE: CASE EVENT DATE: 2012
